FAERS Safety Report 10187937 (Version 1)
Quarter: 2014Q2

REPORT INFORMATION
  Report Type: Spontaneous
  Country: US (occurrence: US)
  Receive Date: 20140522
  Receipt Date: 20140522
  Transmission Date: 20141212
  Serious: No
  Sender: FDA-Public Use
  Company Number: US-SANOFI-AVENTIS-2013SA093921

PATIENT
  Age: 67 Year
  Sex: Female

DRUGS (3)
  1. LANTUS SOLOSTAR [Suspect]
     Dosage: TAKEN FROM :2 YEARS AGO. DOSE:65 UNIT(S)
     Route: 051
  2. SOLOSTAR [Concomitant]
  3. ONGLYZA [Concomitant]

REACTIONS (1)
  - Visual impairment [Unknown]
